FAERS Safety Report 13187296 (Version 4)
Quarter: 2017Q3

REPORT INFORMATION
  Report Type: Report from Study
  Country: US (occurrence: US)
  Receive Date: 20170206
  Receipt Date: 20170928
  Transmission Date: 20171127
  Serious: No
  Sender: FDA-Public Use
  Company Number: US-ALEXION PHARMACEUTICALS INC.-A201700879

PATIENT
  Sex: Male

DRUGS (1)
  1. STRENSIQ [Suspect]
     Active Substance: ASFOTASE ALFA
     Indication: HYPOPHOSPHATASIA
     Dosage: UNK
     Route: 058

REACTIONS (11)
  - Language disorder [Unknown]
  - Eosinophil count abnormal [Unknown]
  - Injection site bruising [Not Recovered/Not Resolved]
  - Basophil count abnormal [Unknown]
  - Alanine aminotransferase [Unknown]
  - Abnormal behaviour [Not Recovered/Not Resolved]
  - Obsessive-compulsive disorder [Unknown]
  - Monocyte count abnormal [Unknown]
  - Blood alkaline phosphatase increased [Unknown]
  - Granulocytes abnormal [Unknown]
  - Tooth loss [Unknown]
